FAERS Safety Report 21557514 (Version 1)
Quarter: 2022Q4

REPORT INFORMATION
  Report Type: Spontaneous
  Country: US (occurrence: US)
  Receive Date: 20221105
  Receipt Date: 20221105
  Transmission Date: 20230113
  Serious: Yes (Other)
  Sender: FDA-Public Use
  Company Number: US-Shilpa Medicare Limited-SML-US-2022-01422

PATIENT
  Age: 2 Year
  Sex: Female

DRUGS (2)
  1. IMATINIB [Suspect]
     Active Substance: IMATINIB
     Indication: Fibrodysplasia ossificans progressiva
     Dosage: TWO TO THREE WEEKS OF DAILY
  2. PALOVAROTENE [Suspect]
     Active Substance: PALOVAROTENE
     Indication: Fibrodysplasia ossificans progressiva
     Dosage: 16 MONTHS

REACTIONS (2)
  - Nausea [Unknown]
  - Off label use [Unknown]
